FAERS Safety Report 5553631-X (Version None)
Quarter: 2007Q4

REPORT INFORMATION
  Report Type: 
  Country: None (occurrence: None)
  Receive Date: 20071213
  Receipt Date: 20071205
  Transmission Date: 20080405
  Serious: Yes (Other)
  Sender: FDA-Public Use
  Company Number: PHEH2006US01239

PATIENT
  Age: 52 Year
  Sex: Female
  Weight: 69.841 kg

DRUGS (13)
  1. AREDIA [Suspect]
     Indication: METASTASES TO BONE
     Dosage: UNK,UNK
     Route: 042
  2. ZOMETA [Suspect]
     Indication: METASTASES TO BONE
     Dosage: 4 MG Q21DAYS
     Route: 042
     Dates: end: 20050120
  3. ZOMETA [Suspect]
     Dosage: 4 MG Q21 DAYS
     Route: 042
     Dates: start: 20050501, end: 20050627
  4. ALLEGRA [Concomitant]
  5. ATACAND [Concomitant]
     Dosage: 160 MG, QD
  6. PREVACID [Concomitant]
     Dosage: 30 MG, QD
  7. TAMOXIFEN CITRATE [Concomitant]
     Indication: BREAST CANCER
     Dates: start: 19970101
  8. MEGACE [Concomitant]
     Indication: BREAST CANCER
     Dosage: 80 MG, QD
  9. MEGACE [Concomitant]
     Dosage: 40 MG, QD
  10. ARIMIDEX [Concomitant]
  11. AROMASIN [Concomitant]
  12. TAXOTERE [Concomitant]
     Indication: BREAST CANCER
  13. XELODA [Concomitant]
     Indication: BREAST CANCER
     Dosage: 1000 MG, BID

REACTIONS (15)
  - BACTERIAL INFECTION [None]
  - BIOPSY BONE ABNORMAL [None]
  - BONE DISORDER [None]
  - BONE FRAGMENTATION [None]
  - BONE SWELLING [None]
  - DENTAL CLEANING [None]
  - GINGIVITIS [None]
  - IMPAIRED HEALING [None]
  - MASS [None]
  - METASTASES TO LIVER [None]
  - ORAL SURGERY [None]
  - ORTHOPEDIC PROCEDURE [None]
  - OSTEONECROSIS [None]
  - TOOTH DISORDER [None]
  - TOOTH EXTRACTION [None]
